FAERS Safety Report 5882980-0 (Version None)
Quarter: 2008Q3

REPORT INFORMATION
  Report Type: 
  Country: None (occurrence: None)
  Receive Date: 20080913
  Receipt Date: 20080822
  Transmission Date: 20090109
  Serious: No
  Sender: FDA-Public Use
  Company Number: US-ABBOTT-08P-163-0472376-00

PATIENT
  Sex: Female
  Weight: 55.842 kg

DRUGS (2)
  1. HUMIRA [Suspect]
     Indication: ANKYLOSING SPONDYLITIS
     Route: 058
     Dates: start: 20080101
  2. NARCOTICS [Concomitant]
     Indication: PAIN
     Route: 048

REACTIONS (3)
  - ACCIDENTAL EXPOSURE [None]
  - CYSTITIS [None]
  - NEPHROLITHIASIS [None]
